FAERS Safety Report 10574720 (Version 2)
Quarter: 2014Q4

REPORT INFORMATION
  Report Type: Spontaneous
  Country: JP (occurrence: JP)
  Receive Date: 20141110
  Receipt Date: 20141110
  Transmission Date: 20150529
  Serious: Yes (Hospitalization)
  Sender: FDA-Public Use
  Company Number: JP-009507513-1411JPN000148

PATIENT
  Age: 62 Year
  Sex: Female
  Weight: 57 kg

DRUGS (9)
  1. ZETIA [Suspect]
     Active Substance: EZETIMIBE
     Indication: HYPERCHOLESTEROLAEMIA
     Dosage: 10 MG, QD
     Route: 048
  2. MEVALOTIN [Suspect]
     Active Substance: PRAVASTATIN SODIUM
     Dosage: UNK, QD
     Route: 048
  3. MEVALOTIN [Suspect]
     Active Substance: PRAVASTATIN SODIUM
     Indication: HYPERCHOLESTEROLAEMIA
     Dosage: 10 MG, QD, DIVIDED DOSE FREQUENCY UNKNOWN
     Route: 048
  4. PREDNISOLONE. [Concomitant]
     Active Substance: PREDNISOLONE
     Dosage: 7 MG, QD; DIVIDED DOSE FREQUENCY UNKNOWN
     Route: 048
     Dates: start: 200905
  5. PREDNISOLONE. [Concomitant]
     Active Substance: PREDNISOLONE
     Indication: POLYMYOSITIS
     Dosage: 25 MG, QD; DIVIDED DOSE FREQUENCY UNKNOWN
     Route: 048
  6. PREDNISOLONE. [Concomitant]
     Active Substance: PREDNISOLONE
     Dosage: 10 MG, QD; DIVIDED DOSE FREQUENCY UNKNOWN
     Route: 048
  7. ZETIA [Suspect]
     Active Substance: EZETIMIBE
     Dosage: DAILY DOSAGE UNKNOWN
     Route: 048
  8. PREDNISOLONE. [Concomitant]
     Active Substance: PREDNISOLONE
     Dosage: 15 MG, QD; DIVIDED DOSE FREQUENCY UNKNOWN
     Route: 048
  9. PREDNISOLONE. [Concomitant]
     Active Substance: PREDNISOLONE
     Dosage: 5 MG, QD; DIVIDED DOSE FREQUENCY UNKNOWN
     Route: 048
     Dates: end: 20100519

REACTIONS (1)
  - Polymyositis [Recovered/Resolved]
